FAERS Safety Report 6960187-3 (Version None)
Quarter: 2010Q3

REPORT INFORMATION
  Report Type: 
  Country: None (occurrence: None)
  Receive Date: 20100901
  Receipt Date: 20100819
  Transmission Date: 20110219
  Serious: Yes (Other)
  Sender: FDA-Public Use
  Company Number: PHHY2010US55773

PATIENT
  Sex: Female

DRUGS (9)
  1. RECLAST [Suspect]
     Dosage: UNK
     Dates: start: 20090301
  2. ACTONEL [Suspect]
  3. FOSAMAX [Suspect]
  4. BONIVA [Suspect]
  5. LEVOTHYROXINE [Concomitant]
  6. PRAVASTATIN [Concomitant]
  7. CALCIUM [Concomitant]
     Dosage: 1800 IU
  8. VITAMIN D [Concomitant]
  9. FEMARA [Concomitant]

REACTIONS (11)
  - BREAST OPERATION [None]
  - EAR PAIN [None]
  - FACIAL PAIN [None]
  - HEADACHE [None]
  - NERVE COMPRESSION [None]
  - OESOPHAGEAL DISCOMFORT [None]
  - OSTEOPENIA [None]
  - TEMPOROMANDIBULAR JOINT SYNDROME [None]
  - TOOTH DISORDER [None]
  - TOOTH FRACTURE [None]
  - TRIGEMINAL NEURALGIA [None]
